FAERS Safety Report 4626093-4 (Version None)
Quarter: 2005Q2

REPORT INFORMATION
  Report Type: 
  Country: None (occurrence: None)
  Receive Date: 20050404
  Receipt Date: 20050322
  Transmission Date: 20051028
  Serious: Yes (Hospitalization, Disabling)
  Sender: FDA-Public Use
  Company Number: TH-BRISTOL-MYERS SQUIBB COMPANY-12913992

PATIENT
  Age: 27 Year
  Sex: Male

DRUGS (3)
  1. EFAVIRENZ TABS 600 MG [Suspect]
     Indication: HIV INFECTION
     Route: 048
     Dates: start: 20050302
  2. ZIDOVUDINE [Suspect]
     Indication: HIV INFECTION
     Dosage: DOSAGE DECREASED TO 200 MG TWICE DAILY ON 09-MAR-2005.
     Route: 048
     Dates: start: 20050302
  3. TENOFOVIR [Suspect]
     Indication: HIV INFECTION
     Route: 048
     Dates: start: 20050302

REACTIONS (7)
  - DIZZINESS [None]
  - FACIAL PALSY [None]
  - HEMIPLEGIA [None]
  - ISCHAEMIC STROKE [None]
  - NAUSEA [None]
  - VASCULITIS [None]
  - VOMITING [None]
